FAERS Safety Report 7240334-9 (Version None)
Quarter: 2011Q1

REPORT INFORMATION
  Report Type: 
  Country: None (occurrence: None)
  Receive Date: 20110124
  Receipt Date: 20110114
  Transmission Date: 20110831
  Serious: Yes (Other)
  Sender: FDA-Public Use
  Company Number: DE-JNJFOC-20110104011

PATIENT
  Sex: Female

DRUGS (1)
  1. ORTHO EVRA [Suspect]
     Indication: ILL-DEFINED DISORDER
     Route: 062

REACTIONS (5)
  - DRUG HYPERSENSITIVITY [None]
  - LIP OEDEMA [None]
  - URTICARIA [None]
  - LARYNGEAL OEDEMA [None]
  - PRURITUS [None]
